FAERS Safety Report 8452745-4 (Version None)
Quarter: 2012Q2

REPORT INFORMATION
  Report Type: 
  Country: None (occurrence: None)
  Receive Date: 20120620
  Receipt Date: 20120424
  Transmission Date: 20120825
  Serious: No
  Sender: FDA-Public Use
  Company Number: US-VERTEX PHARMACEUTICALS INC.-AE-2012-005906

PATIENT
  Sex: Male
  Weight: 152.09 kg

DRUGS (3)
  1. INCIVEK [Suspect]
     Indication: HEPATITIS C
     Route: 048
     Dates: start: 20120421
  2. PEGINTERFERON ALFA-2A [Concomitant]
     Indication: HEPATITIS C
     Route: 058
     Dates: start: 20120421
  3. RIBAVIRIN [Concomitant]
     Indication: HEPATITIS C
     Route: 048
     Dates: start: 20120421

REACTIONS (9)
  - INFLUENZA LIKE ILLNESS [None]
  - PHOTOPHOBIA [None]
  - ASTHENOPIA [None]
  - LACRIMATION INCREASED [None]
  - PROCTALGIA [None]
  - MUSCLE SPASMS [None]
  - EYE IRRITATION [None]
  - ANORECTAL DISCOMFORT [None]
  - PAIN [None]
